FAERS Safety Report 11499870 (Version 2)
Quarter: 2015Q4

REPORT INFORMATION
  Report Type: Spontaneous
  Country: JP (occurrence: JP)
  Receive Date: 20150914
  Receipt Date: 20151012
  Transmission Date: 20160304
  Serious: Yes (Other)
  Sender: FDA-Public Use
  Company Number: JP-ELI_LILLY_AND_COMPANY-JP201509002872

PATIENT
  Age: 55 Year
  Sex: Male
  Weight: 62.1 kg

DRUGS (4)
  1. CYMBALTA [Suspect]
     Active Substance: DULOXETINE HYDROCHLORIDE
     Dosage: 40 MG, QD
     Route: 048
     Dates: start: 20150711, end: 20150903
  2. MUCOSTA [Concomitant]
     Active Substance: REBAMIPIDE
     Indication: INTERVERTEBRAL DISC PROTRUSION
     Dosage: 100 MG, BID
     Route: 048
     Dates: start: 20150612, end: 20150903
  3. CYMBALTA [Suspect]
     Active Substance: DULOXETINE HYDROCHLORIDE
     Indication: FIBROMYALGIA
     Dosage: 20 MG, QD
     Route: 048
     Dates: start: 20150627, end: 20150710
  4. CELECOX [Concomitant]
     Active Substance: CELECOXIB
     Indication: INTERVERTEBRAL DISC PROTRUSION
     Dosage: 100 MG, BID
     Route: 048
     Dates: start: 20150612, end: 20150903

REACTIONS (1)
  - Drug-induced liver injury [Recovering/Resolving]

NARRATIVE: CASE EVENT DATE: 20150829
